FAERS Safety Report 7149249-8 (Version None)
Quarter: 2010Q4

REPORT INFORMATION
  Report Type: 
  Country: None (occurrence: None)
  Receive Date: 20101209
  Receipt Date: 20101129
  Transmission Date: 20110411
  Serious: Yes (Hospitalization)
  Sender: FDA-Public Use
  Company Number: GXKR2010NL13606

PATIENT
  Sex: Female

DRUGS (6)
  1. FUROSEMIDE SANDOZ (NGX) [Suspect]
     Dosage: 1 DF, QD
     Route: 048
     Dates: start: 20050101
  2. SOTALOL HCL [Suspect]
     Dosage: 1 DF, BID
     Route: 048
     Dates: start: 20050101
  3. ACENOCOUMAROL [Concomitant]
     Dosage: 1 MG, UNK
  4. DIGOXINE [Concomitant]
     Dosage: 1 DF, QD
  5. TRIAMTERENE [Concomitant]
     Dosage: 1 DF, QD
  6. ATORVASTATIN [Concomitant]
     Dosage: 1 DF, QD

REACTIONS (4)
  - BLOOD POTASSIUM ABNORMAL [None]
  - DEHYDRATION [None]
  - DRUG ADMINISTRATION ERROR [None]
  - MEDICATION ERROR [None]
